FAERS Safety Report 9780609 (Version 1)
Quarter: 2013Q4

REPORT INFORMATION
  Report Type: Spontaneous
  Country: US (occurrence: US)
  Receive Date: 20131224
  Receipt Date: 20131224
  Transmission Date: 20140711
  Serious: No
  Sender: FDA-Public Use
  Company Number: US-JNJFOC-20131208567

PATIENT
  Sex: Male
  Weight: 81.65 kg

DRUGS (4)
  1. DURAGESIC [Suspect]
     Indication: PAIN
     Route: 062
     Dates: start: 2013
  2. WELLBUTRIN [Concomitant]
     Indication: ANXIETY
     Route: 048
     Dates: start: 2011
  3. PROZAC [Concomitant]
     Indication: DEPRESSION
     Route: 048
     Dates: start: 2011
  4. PROZAC [Concomitant]
     Indication: ANXIETY
     Route: 048
     Dates: start: 2011

REACTIONS (5)
  - Product adhesion issue [Unknown]
  - Wrong technique in drug usage process [Unknown]
  - Drug effect decreased [Unknown]
  - Drug dose omission [Unknown]
  - Wrong technique in drug usage process [Unknown]
